FAERS Safety Report 25382123 (Version 2)
Quarter: 2025Q4

REPORT INFORMATION
  Report Type: Spontaneous
  Country: US (occurrence: US)
  Receive Date: 20250531
  Receipt Date: 20251104
  Transmission Date: 20260119
  Serious: No
  Sender: CELLTRION
  Company Number: US-CELLTRION INC.-2025US012918

PATIENT

DRUGS (1)
  1. ZYMFENTRA [Suspect]
     Active Substance: INFLIXIMAB-DYYB
     Indication: Colitis ulcerative
     Dosage: 120 MG, ONE INJECTION GIVEN EVERY TWO WEEKS
     Route: 058
     Dates: start: 20250314

REACTIONS (1)
  - Injection site bruising [Not Recovered/Not Resolved]

NARRATIVE: CASE EVENT DATE: 20250425
